FAERS Safety Report 10736750 (Version 1)
Quarter: 2015Q1

REPORT INFORMATION
  Report Type: Spontaneous
  Country: US (occurrence: US)
  Receive Date: 20150126
  Receipt Date: 20150126
  Transmission Date: 20150721
  Serious: Yes (Hospitalization, Other)
  Sender: FDA-Public Use
  Company Number: US-BAYER-2015-009508

PATIENT
  Age: 32 Year
  Sex: Female

DRUGS (1)
  1. MIRENA [Suspect]
     Active Substance: LEVONORGESTREL
     Indication: CONTRACEPTION
     Dosage: 20 ?G/D, CONT
     Route: 015
     Dates: start: 2011, end: 201203

REACTIONS (8)
  - Mental disorder [None]
  - Cardiac disorder [None]
  - Device dislocation [None]
  - Dyspnoea [None]
  - Chest discomfort [None]
  - Gait disturbance [None]
  - Computerised tomogram abnormal [None]
  - Gastroenteritis [None]
